FAERS Safety Report 23161409 (Version 2)
Quarter: 2023Q4

REPORT INFORMATION
  Report Type: Spontaneous
  Country: DE (occurrence: DE)
  Receive Date: 20231108
  Receipt Date: 20231120
  Transmission Date: 20240110
  Serious: Yes (Other)
  Sender: FDA-Public Use
  Company Number: DE-DCGMA-23202115

PATIENT
  Age: 39 Year
  Sex: Male
  Weight: 99 kg

DRUGS (3)
  1. YESCARTA [Suspect]
     Active Substance: AXICABTAGENE CILOLEUCEL
     Indication: Diffuse large B-cell lymphoma
     Dosage: 40-200X 10^6/KG
     Route: 042
     Dates: start: 20221219
  2. CYCLOPHOSPHAMIDE [Concomitant]
     Active Substance: CYCLOPHOSPHAMIDE
     Indication: Diffuse large B-cell lymphoma
     Dosage: 500 MILLIGRAM PER CUBIC METRE
     Route: 042
     Dates: start: 20221214, end: 20221216
  3. FLUDARABINE PHOSPHATE [Concomitant]
     Active Substance: FLUDARABINE PHOSPHATE
     Indication: Diffuse large B-cell lymphoma
     Dosage: 30 MILLIGRAM PER CUBIC METRE
     Route: 042
     Dates: start: 20221214, end: 20221216

REACTIONS (3)
  - Tumour pseudoprogression [Recovered/Resolved]
  - Condition aggravated [Recovered/Resolved]
  - Oedema [Recovered/Resolved]

NARRATIVE: CASE EVENT DATE: 20221224
